FAERS Safety Report 7495343-1 (Version None)
Quarter: 2011Q2

REPORT INFORMATION
  Report Type: 
  Country: None (occurrence: None)
  Receive Date: 20110523
  Receipt Date: 20110518
  Transmission Date: 20111010
  Serious: Yes (Hospitalization)
  Sender: FDA-Public Use
  Company Number: BR-BIOGENIDEC-2011BI010530

PATIENT
  Age: 48 Year
  Sex: Female

DRUGS (1)
  1. AVONEX [Suspect]
     Indication: MULTIPLE SCLEROSIS
     Route: 030
     Dates: start: 20050101

REACTIONS (11)
  - LOSS OF LIBIDO [None]
  - VISION BLURRED [None]
  - PAIN [None]
  - HYPERTENSION [None]
  - HEADACHE [None]
  - SPEECH DISORDER [None]
  - GLAUCOMA [None]
  - MALAISE [None]
  - CENTRAL NERVOUS SYSTEM LESION [None]
  - GAIT DISTURBANCE [None]
  - PYREXIA [None]
